FAERS Safety Report 10932064 (Version 1)
Quarter: 2015Q1

REPORT INFORMATION
  Report Type: Spontaneous
  Country: US (occurrence: None)
  Receive Date: 20150128
  Receipt Date: 20150128
  Transmission Date: 20150721
  Serious: No
  Sender: FDA-Public Use
  Company Number: 2014TUS014209

PATIENT
  Sex: Female

DRUGS (2)
  1. BUSPAR (BUSPIRONE HYDROCHLORIDE) [Concomitant]
     Dates: start: 2011
  2. BRINTELLIX [Suspect]
     Active Substance: VORTIOXETINE HYDROBROMIDE
     Indication: MAJOR DEPRESSION
     Dosage: HALF OF A 10 MG TABLET, QD, UNKNOWN
     Dates: start: 20141205, end: 20141212

REACTIONS (6)
  - Weight increased [None]
  - Feeling abnormal [None]
  - Sleep terror [None]
  - Bowel movement irregularity [None]
  - Headache [None]
  - Blood pressure increased [None]

NARRATIVE: CASE EVENT DATE: 20141208
